FAERS Safety Report 8072615-3 (Version None)
Quarter: 2012Q1

REPORT INFORMATION
  Report Type: 
  Country: None (occurrence: None)
  Receive Date: 20120124
  Receipt Date: 20120124
  Transmission Date: 20120608
  Serious: No
  Sender: FDA-Public Use
  Company Number: None

PATIENT

DRUGS (1)
  1. HEPARIN SODIUM [Suspect]
     Dosage: INJECTION

REACTIONS (4)
  - DYSPNOEA [None]
  - THROAT IRRITATION [None]
  - PARAESTHESIA [None]
  - MEDICATION ERROR [None]
